FAERS Safety Report 5369928-2 (Version None)
Quarter: 2007Q2

REPORT INFORMATION
  Report Type: 
  Country: None (occurrence: None)
  Receive Date: 20070621
  Receipt Date: 20070605
  Transmission Date: 20071010
  Serious: Yes (Hospitalization)
  Sender: FDA-Public Use
  Company Number: 6034278

PATIENT
  Age: 61 Year
  Sex: Female

DRUGS (5)
  1. METFORMIN HCL [Suspect]
     Indication: DIABETES MELLITUS NON-INSULIN-DEPENDENT
     Dosage: 2 GM (1 GM, 2 IN 1D) ORAL LAST ONE AND HALF YEARS
     Route: 048
  2. ROFECOXIB [Suspect]
     Indication: PAIN
     Dosage: 5 MG (2.5 MG, 2 IN 1 D) ORAL
     Route: 048
  3. COUMARIN (COUMARIN) [Concomitant]
  4. FUROSEMIDE [Concomitant]
  5. RAMIPRIL [Concomitant]

REACTIONS (9)
  - DRUG INTERACTION [None]
  - GINGIVAL BLEEDING [None]
  - HAEMODIALYSIS [None]
  - LACTIC ACIDOSIS [None]
  - PROTHROMBIN TIME [None]
  - PROTHROMBIN TIME PROLONGED [None]
  - RENAL FAILURE [None]
  - RESPIRATORY DISTRESS [None]
  - TACHYCARDIA [None]
